FAERS Safety Report 8321310-1 (Version None)
Quarter: 2012Q2

REPORT INFORMATION
  Report Type: 
  Country: None (occurrence: None)
  Receive Date: 20120430
  Receipt Date: 20120420
  Transmission Date: 20120825
  Serious: Yes (Hospitalization)
  Sender: FDA-Public Use
  Company Number: AU-JNJFOC-20120401661

PATIENT
  Sex: Male

DRUGS (11)
  1. MAXOLON [Concomitant]
     Indication: NAUSEA
     Route: 065
     Dates: start: 20111101
  2. NEXIUM [Concomitant]
     Indication: UNEVALUABLE EVENT
     Route: 065
     Dates: start: 20120301
  3. PANADOL OSTEO [Concomitant]
     Indication: BONE PAIN
     Route: 065
     Dates: start: 20001201
  4. OXYCODONE HCL [Concomitant]
     Indication: BONE PAIN
     Route: 065
     Dates: start: 20100101
  5. PREDNISOLONE [Suspect]
     Indication: PROSTATE CANCER METASTATIC
     Route: 048
     Dates: start: 20120229
  6. OPIUM/NALOXONE TAB [Concomitant]
     Indication: BONE PAIN
     Route: 065
     Dates: start: 20100101
  7. ELIGARD [Concomitant]
     Indication: HORMONE THERAPY
     Route: 065
     Dates: start: 20050801
  8. ABIRATERONE ACETATE [Suspect]
     Route: 048
  9. ATROVENT [Concomitant]
     Indication: DYSPNOEA EXERTIONAL
     Route: 065
     Dates: start: 20000101
  10. WARFARIN SODIUM [Concomitant]
     Indication: PULMONARY EMBOLISM
     Route: 065
     Dates: start: 20101222
  11. ABIRATERONE ACETATE [Suspect]
     Indication: PROSTATE CANCER METASTATIC
     Route: 048
     Dates: start: 20120229

REACTIONS (1)
  - DEHYDRATION [None]
